FAERS Safety Report 7945634-2 (Version None)
Quarter: 2011Q4

REPORT INFORMATION
  Report Type: 
  Country: None (occurrence: None)
  Receive Date: 20111129
  Receipt Date: 20111123
  Transmission Date: 20120403
  Serious: Yes (Death, Life-Threatening, Hospitalization)
  Sender: FDA-Public Use
  Company Number: GB-SANOFI-AVENTIS-2011SA077058

PATIENT
  Age: 46 Year
  Sex: Female
  Weight: 59 kg

DRUGS (18)
  1. TRASTUZUMAB [Suspect]
     Dosage: TOTAL DOSE : 472.5 MG FORM : VIAL, LOADING DOSE
     Route: 042
     Dates: start: 20100617
  2. TRASTUZUMAB [Suspect]
     Dosage: MAINTENANCE DOSE
     Route: 042
     Dates: end: 20100718
  3. DEXAMETHASONE [Concomitant]
     Indication: CHEMOTHERAPY
     Route: 048
     Dates: start: 20100618, end: 20100716
  4. FILGRASTIM [Concomitant]
     Indication: NEUTROPENIA
     Route: 058
     Dates: start: 20100713, end: 20100716
  5. DOCETAXEL [Suspect]
     Route: 042
     Dates: start: 20100618, end: 20100718
  6. TRASTUZUMAB [Suspect]
     Dosage: MAINTENANCE DOSE
     Route: 042
     Dates: end: 20100718
  7. METRONIDAZOLE [Concomitant]
     Dates: start: 20100716, end: 20100719
  8. BEVACIZUMAB [Suspect]
     Dosage: DOSE LEVEL: 15MG/KG , FORM : VIALS
     Route: 042
     Dates: start: 20100618, end: 20100718
  9. FLUCONAZOLE [Concomitant]
     Indication: ORAL CANDIDIASIS
     Route: 048
     Dates: start: 20100709, end: 20100716
  10. FLUCONAZOLE [Concomitant]
     Route: 048
     Dates: start: 20100716, end: 20100726
  11. VANCOMYCIN [Concomitant]
     Dates: start: 20100716, end: 20100718
  12. APREPITANT [Concomitant]
     Indication: CHEMOTHERAPY
     Dosage: FREQUENCY: 1 HOUR PRE-CHEMOTHERAPY
     Route: 048
     Dates: start: 20100709, end: 20100709
  13. APREPITANT [Concomitant]
     Dosage: FREQUENCY: 1 HOUR PRE-CHEMOTHERAPY
     Route: 048
     Dates: start: 20100710, end: 20100711
  14. TRASTUZUMAB [Suspect]
     Dosage: TOTAL DOSE : 472.5 MG FORM : VIAL, LOADING DOSE
     Route: 042
     Dates: start: 20100617
  15. MEROPENEM [Concomitant]
     Dates: start: 20100716, end: 20100726
  16. DOCETAXEL [Suspect]
     Route: 042
     Dates: start: 20100618, end: 20100718
  17. CARBOPLATIN [Suspect]
     Dosage: DOSE LEVEL : 6AUC , FORM :VIALS
     Route: 042
     Dates: start: 20100618, end: 20100718
  18. METOCLOPRAMIDE [Concomitant]
     Indication: NAUSEA
     Route: 048

REACTIONS (10)
  - ENDOTRACHEAL INTUBATION [None]
  - INTESTINAL ISCHAEMIA [None]
  - PLEURAL EFFUSION [None]
  - INFECTIOUS PERITONITIS [None]
  - NEUTROPENIA [None]
  - ABDOMINAL SEPSIS [None]
  - NEUTROPENIC SEPSIS [None]
  - DIARRHOEA [None]
  - DISSEMINATED INTRAVASCULAR COAGULATION [None]
  - ABDOMINAL PAIN [None]
